FAERS Safety Report 8222332-1 (Version None)
Quarter: 2012Q1

REPORT INFORMATION
  Report Type: 
  Country: None (occurrence: None)
  Receive Date: 20120320
  Receipt Date: 20120309
  Transmission Date: 20120608
  Serious: Yes (Other)
  Sender: FDA-Public Use
  Company Number: US-BAYER-2012-025548

PATIENT
  Age: 22 Year
  Sex: Female

DRUGS (1)
  1. YAZ [Suspect]
     Dosage: UNK
     Dates: start: 20060301

REACTIONS (6)
  - BILIARY COLIC [None]
  - DIARRHOEA [None]
  - GASTRIC DISORDER [None]
  - HAEMATEMESIS [None]
  - SCAR [None]
  - PROCEDURAL PAIN [None]
